FAERS Safety Report 8594932 (Version 3)
Quarter: 2012Q4

REPORT INFORMATION
  Report Type: 
  Country: US (occurrence: US)
  Receive Date: 20120604
  Receipt Date: 20120831
  Transmission Date: 20130627
  Serious: Yes (Hospitalization, Other)
  Sender: FDA-Public Use
  Company Number: US-BAYER-2012-054535

PATIENT
  Age: 29 Year
  Sex: Female
  Weight: 90.7 kg

DRUGS (5)
  1. ULTRAVIST [Suspect]
     Indication: COMPUTERISED TOMOGRAM
     Dosage: 150 ml, ONCE
     Dates: start: 20120518
  2. ULTRAVIST [Suspect]
     Indication: COMPUTERISED TOMOGRAM
  3. ULTRAVIST [Suspect]
     Indication: COMPUTERISED TOMOGRAM
  4. DILAUDID [Concomitant]
     Indication: PREMEDICATION
  5. ZOFRAN [Concomitant]
     Indication: PREMEDICATION

REACTIONS (1)
  - Contrast media reaction [Recovered/Resolved]
